FAERS Safety Report 17162696 (Version 1)
Quarter: 2019Q4

REPORT INFORMATION
  Report Type: Spontaneous
  Country: LT (occurrence: LT)
  Receive Date: 20191217
  Receipt Date: 20191217
  Transmission Date: 20200122
  Serious: Yes (Death, Other)
  Sender: FDA-Public Use
  Company Number: LT-ROCHE-2493721

PATIENT
  Age: 56 Year

DRUGS (1)
  1. CLONAZEPAM. [Suspect]
     Active Substance: CLONAZEPAM
     Indication: PRODUCT USED FOR UNKNOWN INDICATION
     Dosage: 5-8 TABLETS (10-16 MG)
     Route: 048
     Dates: start: 20191109, end: 20191109

REACTIONS (4)
  - Completed suicide [Fatal]
  - Accidental overdose [Unknown]
  - Pneumonia aspiration [Unknown]
  - Asthenia [Unknown]
